FAERS Safety Report 23719422 (Version 1)
Quarter: 2024Q2

REPORT INFORMATION
  Report Type: Other
  Country: TH (occurrence: TH)
  Receive Date: 20240408
  Receipt Date: 20240408
  Transmission Date: 20240715
  Serious: Yes (Hospitalization)
  Sender: FDA-Public Use
  Company Number: TH-Bion-012813

PATIENT
  Age: 57 Year
  Sex: Female

DRUGS (5)
  1. DEXAMETHASONE [Suspect]
     Active Substance: DEXAMETHASONE
     Indication: Organising pneumonia
     Route: 042
  2. CISATRACURIUM BESYLATE [Concomitant]
     Active Substance: CISATRACURIUM BESYLATE
     Indication: Muscle relaxant therapy
  3. FENTANYL [Concomitant]
     Active Substance: FENTANYL\FENTANYL CITRATE
     Indication: Sedative therapy
  4. MIDAZOLAM [Concomitant]
     Active Substance: MIDAZOLAM
     Indication: Sedative therapy
  5. DEXAMETHASONE [Suspect]
     Active Substance: DEXAMETHASONE
     Indication: Organising pneumonia
     Route: 042

REACTIONS (1)
  - Rebound effect [Recovering/Resolving]
